FAERS Safety Report 4468388-3 (Version None)
Quarter: 2004Q4

REPORT INFORMATION
  Report Type: 
  Country: None (occurrence: None)
  Receive Date: 20041007
  Receipt Date: 20040930
  Transmission Date: 20050328
  Serious: Yes (Other)
  Sender: FDA-Public Use
  Company Number: GB-2004-031963

PATIENT
  Age: 64 Year
  Sex: Female

DRUGS (4)
  1. CHLORAMBUCIL [Suspect]
     Route: 065
  2. FLUDARABINE PHOSPHATE [Suspect]
     Route: 065
  3. PREDNISOLONE [Concomitant]
     Route: 065
  4. ANTINEOPLASTIC DRUGS [Concomitant]

REACTIONS (4)
  - HERPES ZOSTER [None]
  - PARAPSORIASIS [None]
  - SEBORRHOEIC KERATOSIS [None]
  - SQUAMOUS CELL CARCINOMA [None]
